FAERS Safety Report 6649961-0 (Version None)
Quarter: 2010Q1

REPORT INFORMATION
  Report Type: 
  Country: None (occurrence: None)
  Receive Date: 20100325
  Receipt Date: 20100312
  Transmission Date: 20100710
  Serious: Yes (Life-Threatening)
  Sender: FDA-Public Use
  Company Number: GB-RANBAXY-2009RR-29181

PATIENT
  Age: 85 Year
  Sex: Female

DRUGS (2)
  1. AMPICILLIN SODIUM/SULBACTAM SODIUM [Suspect]
     Indication: LOWER RESPIRATORY TRACT INFECTION
     Dosage: 625 MG, TID
     Dates: start: 20091016, end: 20091023
  2. WARFARIN SODIUM [Suspect]
     Indication: ATRIAL FIBRILLATION
     Dosage: 3 MG, QD
     Route: 048

REACTIONS (6)
  - APHASIA [None]
  - BRAIN OEDEMA [None]
  - CEREBRAL HAEMORRHAGE [None]
  - DILATATION VENTRICULAR [None]
  - HEMIPARESIS [None]
  - INTERNATIONAL NORMALISED RATIO INCREASED [None]
